FAERS Safety Report 8794417 (Version 3)
Quarter: 2014Q3

REPORT INFORMATION
  Report Type: Spontaneous
  Country: US (occurrence: US)
  Receive Date: 20120917
  Receipt Date: 20140827
  Transmission Date: 20150326
  Serious: Yes (Hospitalization, Other)
  Sender: FDA-Public Use
  Company Number: US-009507513-2012SP028985

PATIENT
  Sex: Female
  Weight: 113.38 kg

DRUGS (1)
  1. NUVARING [Suspect]
     Active Substance: ETHINYL ESTRADIOL\ETONOGESTREL
     Indication: CONTRACEPTION
     Dosage: UNK
     Dates: start: 20110715, end: 201109

REACTIONS (15)
  - Deep vein thrombosis [Unknown]
  - Laceration [Unknown]
  - Syncope [Unknown]
  - Thrombosis [Unknown]
  - Sinusitis [Unknown]
  - Pulmonary embolism [Unknown]
  - Pulmonary venous thrombosis [Unknown]
  - Infection [Unknown]
  - Sinus arrhythmia [Unknown]
  - Fall [Unknown]
  - Bronchitis [Unknown]
  - Portal vein thrombosis [Unknown]
  - Pulmonary infarction [Unknown]
  - Loss of consciousness [Unknown]
  - Pleural effusion [Unknown]

NARRATIVE: CASE EVENT DATE: 20110831
